FAERS Safety Report 4874182-1 (Version None)
Quarter: 2006Q1

REPORT INFORMATION
  Report Type: 
  Country: None (occurrence: None)
  Receive Date: 20060106
  Receipt Date: 20051216
  Transmission Date: 20060701
  Serious: Yes (Other)
  Sender: FDA-Public Use
  Company Number: IE-JNJFOC-20050805265

PATIENT
  Sex: Female

DRUGS (4)
  1. RISPERDAL [Suspect]
     Route: 048
  2. RISPERDAL [Suspect]
     Route: 048
  3. CARBAMAZEPINE [Concomitant]
  4. MELATONIN [Concomitant]
     Dosage: AT NIGHT.

REACTIONS (1)
  - PRECOCIOUS PUBERTY [None]
